FAERS Safety Report 10556553 (Version 3)
Quarter: 2015Q2

REPORT INFORMATION
  Report Type: Spontaneous
  Country: FR (occurrence: FR)
  Receive Date: 20141031
  Receipt Date: 20150626
  Transmission Date: 20150821
  Serious: Yes (Hospitalization)
  Sender: FDA-Public Use
  Company Number: FR-UCBSA-2014014619

PATIENT
  Age: 20 Year
  Sex: Male
  Weight: 65 kg

DRUGS (4)
  1. KEPPRA [Suspect]
     Active Substance: LEVETIRACETAM
     Dosage: 1.5 G, 2X/DAY (BID)
     Dates: start: 2014, end: 2014
  2. KEPPRA [Suspect]
     Active Substance: LEVETIRACETAM
     Indication: PARTIAL SEIZURES
     Dosage: 500 MG, 2X/DAY (BID)
     Dates: start: 2012
  3. VIMPAT [Suspect]
     Active Substance: LACOSAMIDE
     Indication: PARTIAL SEIZURES
     Dosage: 50 MG, 2X/DAY (BID)
     Dates: start: 20141002, end: 20141004
  4. KEPPRA [Suspect]
     Active Substance: LEVETIRACETAM
     Dosage: 500 MG MORNING AND 750 MG EVENING
     Dates: start: 201409

REACTIONS (6)
  - Epilepsy [Unknown]
  - Euphoric mood [Recovered/Resolved]
  - Ideas of reference [Unknown]
  - Confusional state [Unknown]
  - Disinhibition [Recovered/Resolved]
  - Agitation [Recovered/Resolved]

NARRATIVE: CASE EVENT DATE: 2014
